FAERS Safety Report 25038921 (Version 1)
Quarter: 2025Q1

REPORT INFORMATION
  Report Type: Spontaneous
  Country: IQ (occurrence: IQ)
  Receive Date: 20250305
  Receipt Date: 20250305
  Transmission Date: 20250408
  Serious: Yes (Other)
  Sender: SETON PHARMACEUTICALS
  Company Number: IQ-SETONPHARMA-2025SETLIT00007

PATIENT
  Age: 33 Year
  Sex: Male

DRUGS (2)
  1. PREDNISOLONE [Suspect]
     Active Substance: PREDNISOLONE
     Indication: Takayasu^s arteritis
     Route: 048
  2. ETANERCEPT [Concomitant]
     Active Substance: ETANERCEPT
     Route: 058

REACTIONS (2)
  - Erectile dysfunction [Unknown]
  - Acne [Unknown]

NARRATIVE: CASE EVENT DATE: 20230101
